FAERS Safety Report 6259610-1 (Version None)
Quarter: 2009Q3

REPORT INFORMATION
  Report Type: 
  Country: None (occurrence: None)
  Receive Date: 20090706
  Receipt Date: 20090706
  Transmission Date: 20100115
  Serious: No
  Sender: FDA-Public Use
  Company Number: None

PATIENT
  Age: 39 Year
  Sex: Male
  Weight: 92.08 kg

DRUGS (2)
  1. CLOZAPINE [Suspect]
     Indication: SCHIZOPHRENIA, PARANOID TYPE
     Dosage: 600MG 200MG PO QAM 400MG PO QHS BY MOUTH
     Route: 048
     Dates: start: 20090606
  2. TRILEPTAL [Suspect]
     Indication: PSYCHOTIC DISORDER
     Dosage: 1200MG 600MG BID BY MOUTH
     Route: 048
     Dates: start: 20090606, end: 20090629

REACTIONS (2)
  - GRANULOCYTOPENIA [None]
  - NEUTROPENIA [None]
